FAERS Safety Report 5877267-6 (Version None)
Quarter: 2008Q3

REPORT INFORMATION
  Report Type: 
  Country: None (occurrence: None)
  Receive Date: 20080908
  Receipt Date: 20080901
  Transmission Date: 20090109
  Serious: Yes (Death, Hospitalization)
  Sender: FDA-Public Use
  Company Number: 2008-183017-NL

PATIENT
  Sex: Female

DRUGS (3)
  1. ETONOGESTREL [Suspect]
     Dosage: DF TRANSPLACENTAL
     Route: 064
     Dates: start: 20060504, end: 20060711
  2. PYRIDOXINE HYDROCHLORIDE [Concomitant]
  3. RIFINAH [Concomitant]

REACTIONS (3)
  - MATERNAL DRUGS AFFECTING FOETUS [None]
  - PNEUMOTHORAX [None]
  - PREMATURE BABY [None]
